FAERS Safety Report 4527106-0 (Version None)
Quarter: 2004Q4

REPORT INFORMATION
  Report Type: 
  Country: None (occurrence: None)
  Receive Date: 20041201
  Receipt Date: 20041022
  Transmission Date: 20050328
  Serious: Yes (Other)
  Sender: FDA-Public Use
  Company Number: US096579

PATIENT
  Age: 65 Year
  Sex: Female

DRUGS (8)
  1. ENBREL [Suspect]
     Indication: RHEUMATOID ARTHRITIS
     Dosage: 25 MG, 2 IN 1 WEEKS
     Dates: start: 20040519, end: 20040920
  2. DIFLUNISAL [Concomitant]
  3. TRIAMTERENE AND HYDROCHLOROTHIAZIDE [Concomitant]
  4. LANSOPRAZOLE [Concomitant]
  5. CETIRIZINE HCL [Concomitant]
  6. VICODIN [Concomitant]
  7. LIDOCAINE [Concomitant]
  8. METOPROLOL SUCCINATE [Concomitant]

REACTIONS (1)
  - CUTANEOUS LUPUS ERYTHEMATOSUS [None]
